FAERS Safety Report 8176793-7 (Version None)
Quarter: 2012Q1

REPORT INFORMATION
  Report Type: 
  Country: None (occurrence: None)
  Receive Date: 20120301
  Receipt Date: 20111229
  Transmission Date: 20120608
  Serious: Yes (Hospitalization, Other)
  Sender: FDA-Public Use
  Company Number: CA-JNJFOC-20120100211

PATIENT
  Sex: Female
  Weight: 68 kg

DRUGS (2)
  1. REMICADE [Suspect]
     Indication: CROHN'S DISEASE
     Route: 042
     Dates: start: 20110627
  2. PREDNISONE TAB [Concomitant]
     Route: 048

REACTIONS (5)
  - DIARRHOEA [None]
  - ABDOMINAL PAIN [None]
  - PYREXIA [None]
  - NAUSEA [None]
  - FATIGUE [None]
